FAERS Safety Report 14128630 (Version 1)
Quarter: 2017Q4

REPORT INFORMATION
  Report Type: Spontaneous
  Country: US (occurrence: US)
  Receive Date: 20171026
  Receipt Date: 20171026
  Transmission Date: 20180321
  Serious: Yes (Disabling)
  Sender: FDA-Public Use
  Company Number: None

PATIENT
  Age: 56 Year
  Sex: Female
  Weight: 82.35 kg

DRUGS (13)
  1. MAGNESIUM [Concomitant]
     Active Substance: MAGNESIUM
  2. VITAMIN D3 [Concomitant]
     Active Substance: CHOLECALCIFEROL
  3. TURMERIC [Concomitant]
     Active Substance: HERBALS\TURMERIC
  4. VITAMINS [Concomitant]
     Active Substance: VITAMINS
  5. BIOTIN [Concomitant]
     Active Substance: BIOTIN
  6. COLOSTRUM HUMAN [Concomitant]
     Active Substance: HUMAN COLOSTRUM
  7. PASSION FLOWER [Concomitant]
     Active Substance: HERBALS\HOMEOPATHICS\PASSIFLORA INCARNATA FLOWER
  8. VITAMIN C [Concomitant]
     Active Substance: ASCORBIC ACID
  9. COLLAGEN [Concomitant]
     Active Substance: COLLAGEN
  10. CIPROFLOXACIN 500MG TABLETS [Suspect]
     Active Substance: CIPROFLOXACIN
     Indication: SINUSITIS
     Dosage: ?          QUANTITY:20 TABLET(S);?
     Route: 048
     Dates: start: 20170418, end: 20170422
  11. TIZANIDINE. [Concomitant]
     Active Substance: TIZANIDINE
  12. MELATONIN [Concomitant]
     Active Substance: MELATONIN
  13. KRATOM (MITRAGYNA) [Concomitant]
     Active Substance: MITRAGYNINE\HERBALS

REACTIONS (17)
  - Headache [None]
  - Alopecia [None]
  - Gastrooesophageal reflux disease [None]
  - Fatigue [None]
  - Arthralgia [None]
  - Amnesia [None]
  - Spinal pain [None]
  - Insomnia [None]
  - Asthenia [None]
  - Pain [None]
  - Disturbance in attention [None]
  - Feeling of despair [None]
  - Rash [None]
  - Weight increased [None]
  - Palpitations [None]
  - Panic attack [None]
  - Abdominal discomfort [None]

NARRATIVE: CASE EVENT DATE: 20170422
